FAERS Safety Report 15909194 (Version 1)
Quarter: 2019Q1

REPORT INFORMATION
  Report Type: Spontaneous
  Country: US (occurrence: US)
  Receive Date: 20190204
  Receipt Date: 20190204
  Transmission Date: 20190417
  Serious: No
  Sender: FDA-Public Use
  Company Number: US-ABBVIE-18K-163-2215585-00

PATIENT
  Sex: Female

DRUGS (1)
  1. HUMIRA [Suspect]
     Active Substance: ADALIMUMAB
     Indication: PRODUCT USED FOR UNKNOWN INDICATION
     Route: 058

REACTIONS (8)
  - Skin induration [Unknown]
  - Skin exfoliation [Unknown]
  - Wound infection [Unknown]
  - Condition aggravated [Unknown]
  - Skin fissures [Unknown]
  - Pain of skin [Unknown]
  - Breast haemorrhage [Unknown]
  - Wound [Unknown]
